FAERS Safety Report 6594570-5 (Version None)
Quarter: 2010Q1

REPORT INFORMATION
  Report Type: 
  Country: None (occurrence: None)
  Receive Date: 20100222
  Receipt Date: 20100212
  Transmission Date: 20100710
  Serious: Yes (Other)
  Sender: FDA-Public Use
  Company Number: US-SANOFI-AVENTIS-2010SA009295

PATIENT
  Sex: Female

DRUGS (2)
  1. LANTUS [Suspect]
     Route: 058
     Dates: start: 20050101
  2. NOVOLOG [Suspect]
     Route: 065
     Dates: start: 20050101

REACTIONS (2)
  - CEREBROVASCULAR ACCIDENT [None]
  - MACULAR DEGENERATION [None]
